FAERS Safety Report 20099910 (Version 1)
Quarter: 2021Q4

REPORT INFORMATION
  Report Type: Spontaneous
  Country: US (occurrence: US)
  Receive Date: 20211123
  Receipt Date: 20211123
  Transmission Date: 20220303
  Serious: No
  Sender: FDA-Public Use
  Company Number: US-JNJFOC-20211137442

PATIENT

DRUGS (2)
  1. PEPCID AC [Suspect]
     Active Substance: FAMOTIDINE
     Indication: Gastric disorder
     Route: 065
     Dates: start: 20211113
  2. PEPCID AC [Concomitant]
     Active Substance: FAMOTIDINE
     Indication: Gastric disorder
     Route: 065
     Dates: start: 20211114

REACTIONS (1)
  - Therapeutic product effect incomplete [Unknown]
